FAERS Safety Report 16259587 (Version 2)
Quarter: 2019Q2

REPORT INFORMATION
  Report Type: Spontaneous
  Country: KE (occurrence: KE)
  Receive Date: 20190501
  Receipt Date: 20190516
  Transmission Date: 20190711
  Serious: Yes (Hospitalization, Other)
  Sender: FDA-Public Use
  Company Number: KE-BAYER-2019-083601

PATIENT
  Sex: Male

DRUGS (1)
  1. LEVITRA [Suspect]
     Active Substance: VARDENAFIL HYDROCHLORIDE TRIHYDRATE
     Dosage: UNK

REACTIONS (7)
  - Genital contusion [Recovering/Resolving]
  - Gangrene [None]
  - Fracture of penis [None]
  - Balanoposthitis [None]
  - Prescription drug used without a prescription [None]
  - Penile contusion [Recovering/Resolving]
  - Intentional overdose [None]
